FAERS Safety Report 7636555-3 (Version None)
Quarter: 2011Q3

REPORT INFORMATION
  Report Type: 
  Country: None (occurrence: None)
  Receive Date: 20110719
  Receipt Date: 20110705
  Transmission Date: 20111222
  Serious: Yes (Hospitalization, Other)
  Sender: FDA-Public Use
  Company Number: JHP201100272

PATIENT
  Age: 27 Year
  Sex: Male

DRUGS (1)
  1. KETALAR [Suspect]
     Indication: DRUG ABUSE
     Dosage: NASAL
     Route: 045

REACTIONS (16)
  - BILIARY DYSKINESIA [None]
  - DRUG ABUSE [None]
  - CHOLESTASIS [None]
  - HYDRONEPHROSIS [None]
  - LUNG CONSOLIDATION [None]
  - TACHYPNOEA [None]
  - BILIARY SEPSIS [None]
  - RENAL FAILURE ACUTE [None]
  - CONTINUOUS HAEMODIAFILTRATION [None]
  - HAEMATURIA [None]
  - DYSPNOEA [None]
  - BILIARY DILATATION [None]
  - INTENTIONAL DRUG MISUSE [None]
  - TACHYCARDIA [None]
  - HYPOTENSION [None]
  - METABOLIC ACIDOSIS [None]
